FAERS Safety Report 8165553-9 (Version None)
Quarter: 2012Q1

REPORT INFORMATION
  Report Type: 
  Country: None (occurrence: None)
  Receive Date: 20120227
  Receipt Date: 20120217
  Transmission Date: 20120608
  Serious: Yes (Hospitalization, Other)
  Sender: FDA-Public Use
  Company Number: US-US-EMD SERONO, INC.-7048416

PATIENT
  Sex: Male
  Weight: 73 kg

DRUGS (2)
  1. REBIF [Suspect]
     Indication: MULTIPLE SCLEROSIS
     Route: 058
     Dates: start: 20041221
  2. VITAMIN D [Concomitant]

REACTIONS (10)
  - INCISION SITE INFECTION [None]
  - GAIT DISTURBANCE [None]
  - INJECTION SITE ERYTHEMA [None]
  - SENSATION OF HEAVINESS [None]
  - PARALYSIS [None]
  - OVERWEIGHT [None]
  - ARTHRITIS [None]
  - MULTIPLE SCLEROSIS [None]
  - INJECTION SITE PAIN [None]
  - FALL [None]
